FAERS Safety Report 7426440-4 (Version None)
Quarter: 2011Q2

REPORT INFORMATION
  Report Type: 
  Country: None (occurrence: None)
  Receive Date: 20110420
  Receipt Date: 20110411
  Transmission Date: 20111010
  Serious: Yes (Hospitalization)
  Sender: FDA-Public Use
  Company Number: DE-BAYER-2011-008957

PATIENT
  Age: 59 Year
  Sex: Male
  Weight: 75 kg

DRUGS (8)
  1. PROPRANOLOL [Concomitant]
     Dosage: 30 MG, UNK
     Dates: start: 20100818
  2. LISINOPRIL [Concomitant]
     Indication: HYPERTENSION
     Dosage: 10 MG, QD
     Dates: start: 20090715
  3. IRINOTECAN [Suspect]
     Dosage: 180 MG/M2; 340 MG
     Route: 042
     Dates: start: 20110119, end: 20110119
  4. LEUCOVORIN [Suspect]
     Dosage: 750 MG, UNK
     Route: 042
     Dates: start: 20110119
  5. FLUOROURACIL [Suspect]
     Dosage: 4500 MG, UNK
     Route: 042
     Dates: start: 20110119
  6. BLINDED SORAFENIB (RAF KINASE INHIBITOR) [Suspect]
     Indication: COLORECTAL CANCER METASTATIC
     Dosage: 400 MG, BID
     Dates: start: 20110120, end: 20110125
  7. HYDROCHLOROTHIAZIDE [Concomitant]
     Indication: HYPERTENSION
     Dosage: 12.5 MG, QD
     Dates: start: 20090715
  8. CIPROFLOXACIN [Concomitant]
     Indication: PROPHYLAXIS
     Dosage: 1000 MG, QD
     Dates: start: 20110121, end: 20110125

REACTIONS (1)
  - LIVER FUNCTION TEST ABNORMAL [None]
